FAERS Safety Report 22261507 (Version 2)
Quarter: 2023Q2

REPORT INFORMATION
  Report Type: Spontaneous
  Country: JP (occurrence: JP)
  Receive Date: 20230427
  Receipt Date: 20230527
  Transmission Date: 20230722
  Serious: Yes (Death, Hospitalization)
  Sender: FDA-Public Use
  Company Number: JP-BAYER-2023A055563

PATIENT
  Age: 83 Year
  Sex: Male

DRUGS (5)
  1. XARELTO [Suspect]
     Active Substance: RIVAROXABAN
     Indication: Pulmonary embolism
     Dosage: DAILY DOSE 30 MG
     Route: 048
     Dates: start: 202109
  2. XARELTO [Suspect]
     Active Substance: RIVAROXABAN
     Indication: Thrombosis prophylaxis
     Route: 048
  3. CLOPIDOGREL [Suspect]
     Active Substance: CLOPIDOGREL BISULFATE
     Indication: Cerebral infarction
     Dosage: DAILY DOSE 75 MG
  4. HEPARIN [Suspect]
     Active Substance: HEPARIN SODIUM
     Indication: Pulmonary embolism
     Dosage: UNK
     Dates: start: 20210906, end: 20210909
  5. LANSOPRAZOLE [Concomitant]
     Active Substance: LANSOPRAZOLE
     Dosage: DAILY DOSE 15 MG

REACTIONS (5)
  - Anaemia [Fatal]
  - Pulmonary embolism [Fatal]
  - Faeces discoloured [Unknown]
  - Dizziness [Unknown]
  - Foaming at mouth [Unknown]

NARRATIVE: CASE EVENT DATE: 20211101
